FAERS Safety Report 6263840-2 (Version None)
Quarter: 2009Q3

REPORT INFORMATION
  Report Type: 
  Country: None (occurrence: None)
  Receive Date: 20090701
  Receipt Date: 20080625
  Transmission Date: 20100115
  Serious: Yes (Hospitalization)
  Sender: FDA-Public Use
  Company Number: 173426USA

PATIENT
  Sex: Male

DRUGS (5)
  1. CISPLATIN [Suspect]
     Indication: HEAD AND NECK CANCER
     Dosage: (75 MG/M2)
  2. CISPLATIN [Suspect]
     Indication: METASTASES TO LUNG
     Dosage: (75 MG/M2)
  3. DOCETAXEL [Suspect]
     Indication: HEAD AND NECK CANCER
     Dosage: (75 MG/M2)
  4. DOCETAXEL [Suspect]
     Indication: METASTASES TO LUNG
     Dosage: (75 MG/M2)
  5. PEGFILGRASTIM [Suspect]

REACTIONS (1)
  - DYSPNOEA [None]
